FAERS Safety Report 8900596 (Version 1)
Quarter: 2012Q4

REPORT INFORMATION
  Report Type: 
  Country: US (occurrence: US)
  Receive Date: 20121109
  Receipt Date: 20121109
  Transmission Date: 20130627
  Serious: No
  Sender: FDA-Public Use
  Company Number: US-009507513-1211USA003504

PATIENT
  Age: 16 Year
  Sex: Female
  Weight: 65.76 kg

DRUGS (2)
  1. IMPLANON [Suspect]
     Indication: CONTRACEPTION
     Dosage: 3 years
     Route: 059
     Dates: start: 20110720
  2. IBUPROFEN [Concomitant]

REACTIONS (2)
  - Presyncope [Not Recovered/Not Resolved]
  - Menorrhagia [Not Recovered/Not Resolved]
